FAERS Safety Report 19100770 (Version 2)
Quarter: 2025Q1

REPORT INFORMATION
  Report Type: Report from Study
  Country: TR (occurrence: TR)
  Receive Date: 20210407
  Receipt Date: 20250213
  Transmission Date: 20250408
  Serious: Yes (Other)
  Sender: ROCHE
  Company Number: TR-ROCHE-2801416

PATIENT
  Age: 66 Year
  Sex: Male
  Weight: 60.0 kg

DRUGS (3)
  1. ATEZOLIZUMAB [Suspect]
     Active Substance: ATEZOLIZUMAB
     Indication: Hepatocellular carcinoma
     Dosage: DATE OF LAST DOSE OF ATEZOLIZUMAB ADMINISTERED PRIOR TO AE ONSET: 20/JAN/2021
     Route: 042
     Dates: start: 20201117
  2. BEVACIZUMAB [Suspect]
     Active Substance: BEVACIZUMAB
     Indication: Hepatocellular carcinoma
     Dosage: DATE OF LAST DOSE OF BEVACIZUMAB ADMINISTERED PRIOR TO AE ONSET: 20/JAN/2021
     Route: 042
     Dates: start: 20201117
  3. BEVACIZUMAB [Suspect]
     Active Substance: BEVACIZUMAB
     Route: 042

REACTIONS (2)
  - Disease progression [Not Recovered/Not Resolved]
  - Drug ineffective [Unknown]

NARRATIVE: CASE EVENT DATE: 20210121
